FAERS Safety Report 9285591 (Version 1)
Quarter: 2013Q2

REPORT INFORMATION
  Report Type: Spontaneous
  Country: US (occurrence: US)
  Receive Date: 20130513
  Receipt Date: 20130513
  Transmission Date: 20140414
  Serious: Yes (Death, Hospitalization, Other)
  Sender: FDA-Public Use
  Company Number: PHHY2013US046531

PATIENT
  Sex: Female

DRUGS (7)
  1. MIDODRINE [Suspect]
  2. OCTREOTIDE [Suspect]
  3. ENTECAVIR [Concomitant]
  4. STEROIDS [Concomitant]
  5. FLUIDS [Concomitant]
  6. BLOOD TRANSFUSION [Concomitant]
  7. ANTIBIOTICS [Concomitant]

REACTIONS (6)
  - Acute hepatic failure [Fatal]
  - Coagulopathy [Fatal]
  - Retroperitoneal haemorrhage [Fatal]
  - Coma hepatic [Fatal]
  - Hepatorenal syndrome [Fatal]
  - Drug ineffective [Unknown]
